FAERS Safety Report 12338914 (Version 1)
Quarter: 2016Q2

REPORT INFORMATION
  Report Type: Spontaneous
  Country: US (occurrence: US)
  Receive Date: 20160505
  Receipt Date: 20160505
  Transmission Date: 20160815
  Serious: Yes (Other)
  Sender: FDA-Public Use
  Company Number: US-TEVA-656609USA

PATIENT
  Age: 33 Year
  Sex: Female

DRUGS (1)
  1. ZECUITY [Suspect]
     Active Substance: SUMATRIPTAN SUCCINATE
     Route: 062
     Dates: start: 201603

REACTIONS (7)
  - Device use error [Unknown]
  - Application site burn [Recovering/Resolving]
  - Application site erythema [Unknown]
  - Application site pruritus [Unknown]
  - Application site discolouration [Not Recovered/Not Resolved]
  - Application site exfoliation [Unknown]
  - Device battery issue [Unknown]

NARRATIVE: CASE EVENT DATE: 201603
